FAERS Safety Report 25689218 (Version 1)
Quarter: 2025Q3

REPORT INFORMATION
  Report Type: Spontaneous
  Country: GB (occurrence: GB)
  Receive Date: 20250818
  Receipt Date: 20250818
  Transmission Date: 20251021
  Serious: Yes (Death)
  Sender: AOP Orphan Pharmaceuticals
  Company Number: GB-AOP-2025002612

PATIENT
  Sex: Male

DRUGS (1)
  1. LANDIOLOL [Suspect]
     Active Substance: LANDIOLOL
     Indication: Cardiac failure
     Dosage: INITIAL DOSE; TITRATED UPWORDS

REACTIONS (2)
  - Drug ineffective [Fatal]
  - Off label use [Unknown]
